FAERS Safety Report 14538105 (Version 2)
Quarter: 2018Q1

REPORT INFORMATION
  Report Type: Spontaneous
  Country: CA (occurrence: CA)
  Receive Date: 20180216
  Receipt Date: 20180220
  Transmission Date: 20180509
  Serious: Yes (Hospitalization)
  Sender: FDA-Public Use
  Company Number: CA-ROCHE-2073437

PATIENT
  Age: 2 Year
  Sex: Female

DRUGS (1)
  1. CLONAZEPAM. [Suspect]
     Active Substance: CLONAZEPAM
     Indication: PRODUCT USED FOR UNKNOWN INDICATION
     Route: 048

REACTIONS (10)
  - Irritability [Recovered/Resolved]
  - Drooling [Recovered/Resolved]
  - Medication error [Unknown]
  - Lethargy [Recovered/Resolved]
  - Dysarthria [Recovered/Resolved]
  - Coordination abnormal [Recovered/Resolved]
  - Accidental exposure to product by child [Unknown]
  - Somnolence [Recovered/Resolved]
  - Drug level above therapeutic [Recovered/Resolved]
  - Ataxia [Recovered/Resolved]
